FAERS Safety Report 9246625 (Version 4)
Quarter: 2021Q2

REPORT INFORMATION
  Report Type: Spontaneous
  Country: DE (occurrence: DE)
  Receive Date: 20130422
  Receipt Date: 20210414
  Transmission Date: 20210717
  Serious: Yes (Hospitalization)
  Sender: FDA-Public Use
  Company Number: DE-TEVA-397899GER

PATIENT
  Age: 55 Year
  Sex: Male

DRUGS (2)
  1. TRAZODONE [Concomitant]
     Active Substance: TRAZODONE HYDROCHLORIDE
     Indication: GENERALISED ANXIETY DISORDER
  2. VENLAFAXINE [Suspect]
     Active Substance: VENLAFAXINE HYDROCHLORIDE
     Indication: GENERALISED ANXIETY DISORDER
     Dosage: 375 MILLIGRAM DAILY;

REACTIONS (6)
  - Akathisia [Recovering/Resolving]
  - Antipsychotic drug level above therapeutic [Recovered/Resolved]
  - Drug ineffective [Unknown]
  - Catecholamines urine increased [Recovered/Resolved]
  - Essential tremor [Recovering/Resolving]
  - Hypertension [Recovered/Resolved]
